FAERS Safety Report 12268271 (Version 1)
Quarter: 2016Q2

REPORT INFORMATION
  Report Type: Report from Study
  Country: BR (occurrence: BR)
  Receive Date: 20160414
  Receipt Date: 20160414
  Transmission Date: 20160815
  Serious: Yes (Other)
  Sender: FDA-Public Use
  Company Number: BR-ABBVIE-16K-020-1604576-00

PATIENT
  Age: 50 Year
  Sex: Male
  Weight: 86 kg

DRUGS (2)
  1. ZETSIM [Concomitant]
     Active Substance: EZETIMIBE\SIMVASTATIN
     Indication: BLOOD CHOLESTEROL ABNORMAL
     Route: 048
  2. HUMIRA [Suspect]
     Active Substance: ADALIMUMAB
     Indication: ANKYLOSING SPONDYLITIS
     Route: 058
     Dates: start: 20150301, end: 201602

REACTIONS (1)
  - Intestinal polyp [Not Recovered/Not Resolved]

NARRATIVE: CASE EVENT DATE: 201602
